FAERS Safety Report 20775119 (Version 1)
Quarter: 2022Q2

REPORT INFORMATION
  Report Type: Spontaneous
  Country: US (occurrence: None)
  Receive Date: 20220502
  Receipt Date: 20220502
  Transmission Date: 20220721
  Serious: Yes (Death)
  Sender: FDA-Public Use
  Company Number: None

PATIENT
  Age: 68 Year
  Sex: Female

DRUGS (1)
  1. PROCRIT [Suspect]
     Active Substance: ERYTHROPOIETIN
     Indication: Anaemia
     Dosage: OTHER QUANTITY : 10,000 UNITS;?FREQUENCY : 3 TIMES A WEEK;?
     Route: 058
     Dates: start: 202111, end: 202204

REACTIONS (1)
  - Death [None]

NARRATIVE: CASE EVENT DATE: 20220427
